FAERS Safety Report 7998485-7 (Version None)
Quarter: 2011Q4

REPORT INFORMATION
  Report Type: 
  Country: None (occurrence: None)
  Receive Date: 20111221
  Receipt Date: 20111212
  Transmission Date: 20120403
  Serious: Yes (Hospitalization)
  Sender: FDA-Public Use
  Company Number: IT-ELI_LILLY_AND_COMPANY-IT201112002982

PATIENT
  Sex: Male

DRUGS (11)
  1. CALCIUM MEFOLINATE [Concomitant]
     Indication: VITAMIN SUPPLEMENTATION
     Dosage: 1 DF, UNK
     Route: 048
  2. SERENASE                           /00027401/ [Concomitant]
     Indication: PSYCHOTIC DISORDER
     Dosage: 1 DF, QD
     Route: 030
     Dates: start: 20090101
  3. IRON [Concomitant]
     Indication: DEFICIENCY ANAEMIA
     Route: 048
  4. LASIX [Concomitant]
     Indication: OEDEMA
     Dosage: 250 MG, QD
     Route: 048
     Dates: start: 20090101, end: 20111014
  5. SELEPARINA [Concomitant]
     Indication: THROMBOSIS PROPHYLAXIS
     Dosage: 1 DF, UNK
     Route: 058
  6. BENEXOL [Concomitant]
     Indication: HYPOVITAMINOSIS
     Route: 048
  7. ZYPREXA [Suspect]
     Indication: PSYCHOTIC DISORDER
     Dosage: 20 MG, QD
     Route: 048
     Dates: start: 20090101
  8. LASIX [Concomitant]
     Dosage: 125 MG, UNK
     Route: 042
  9. NORVASC [Concomitant]
     Indication: HYPERTENSION
     Dosage: 10 MG, QD
     Route: 048
     Dates: start: 20090101
  10. PANTOPRAZOLE [Concomitant]
     Indication: PROPHYLAXIS AGAINST GASTROINTESTINAL ULCER
     Dosage: 20 MG, QD
     Route: 048
     Dates: start: 20090101, end: 20111014
  11. NATECAL D3 [Concomitant]
     Route: 048

REACTIONS (2)
  - CONFUSIONAL STATE [None]
  - STAPHYLOCOCCAL SEPSIS [None]
